FAERS Safety Report 15576117 (Version 2)
Quarter: 2018Q4

REPORT INFORMATION
  Report Type: Spontaneous
  Country: US (occurrence: US)
  Receive Date: 20181101
  Receipt Date: 20181207
  Transmission Date: 20190205
  Serious: Yes (Hospitalization, Other)
  Sender: FDA-Public Use
  Company Number: US-ASTRAZENECA-2018SF40855

PATIENT
  Sex: Female

DRUGS (8)
  1. SYMBICORT [Suspect]
     Active Substance: BUDESONIDE\FORMOTEROL FUMARATE DIHYDRATE
     Indication: BRONCHITIS
     Dosage: TWO TIMES A DAY
     Route: 055
  2. ALBUTEROL. [Concomitant]
     Active Substance: ALBUTEROL
     Indication: BRONCHITIS
     Dosage: 2.5 UG 2-4 TIMES DAY
  3. TUDORZA PRESSAIR [Suspect]
     Active Substance: ACLIDINIUM BROMIDE
     Indication: CHRONIC OBSTRUCTIVE PULMONARY DISEASE
     Route: 055
  4. TUDORZA PRESSAIR [Suspect]
     Active Substance: ACLIDINIUM BROMIDE
     Indication: BRONCHITIS
     Route: 055
  5. TUDORZA PRESSAIR [Suspect]
     Active Substance: ACLIDINIUM BROMIDE
     Indication: BRONCHITIS
     Route: 055
  6. TUDORZA PRESSAIR [Suspect]
     Active Substance: ACLIDINIUM BROMIDE
     Indication: CHRONIC OBSTRUCTIVE PULMONARY DISEASE
     Route: 055
  7. SYMBICORT [Suspect]
     Active Substance: BUDESONIDE\FORMOTEROL FUMARATE DIHYDRATE
     Indication: CHRONIC OBSTRUCTIVE PULMONARY DISEASE
     Dosage: TWO TIMES A DAY
     Route: 055
  8. VENTOLIN [Concomitant]
     Active Substance: ALBUTEROL SULFATE
     Indication: INHALATION THERAPY
     Dosage: 2 PUFFS EVERY 6 HOURS
     Route: 055

REACTIONS (18)
  - Dyspnoea [Unknown]
  - Back disorder [Unknown]
  - Breast swelling [Unknown]
  - Device malfunction [Unknown]
  - Carpal tunnel syndrome [Unknown]
  - Intentional product misuse [Unknown]
  - Large intestinal obstruction [Unknown]
  - Hiatus hernia [Unknown]
  - Feeling abnormal [Unknown]
  - Fall [Unknown]
  - Product dose omission [Unknown]
  - Memory impairment [Unknown]
  - Diarrhoea [Recovered/Resolved]
  - Intervertebral disc disorder [Unknown]
  - Depression [Unknown]
  - Off label use [Unknown]
  - Asthenia [Unknown]
  - Gastric dilatation [Unknown]
